FAERS Safety Report 5228425-5 (Version None)
Quarter: 2007Q1

REPORT INFORMATION
  Report Type: 
  Country: None (occurrence: None)
  Receive Date: 20070205
  Receipt Date: 20070201
  Transmission Date: 20070707
  Serious: Yes (Death)
  Sender: FDA-Public Use
  Company Number: GB-BRISTOL-MYERS SQUIBB COMPANY-13665104

PATIENT
  Age: 39 Year
  Sex: Male

DRUGS (1)
  1. BLEOMYCIN [Suspect]

REACTIONS (1)
  - DEATH [None]
